FAERS Safety Report 12000765 (Version 2)
Quarter: 2016Q2

REPORT INFORMATION
  Report Type: Spontaneous
  Country: US (occurrence: US)
  Receive Date: 20160204
  Receipt Date: 20160426
  Transmission Date: 20160815
  Serious: Yes (Hospitalization, Other)
  Sender: FDA-Public Use
  Company Number: US-PFIZER INC-2016062833

PATIENT
  Age: 61 Year
  Sex: Male

DRUGS (4)
  1. DEPO-TESTOSTERONE [Suspect]
     Active Substance: TESTOSTERONE CYPIONATE
     Dosage: UNK, MONTHLY (ONCE A MONTH)
     Dates: start: 20121113, end: 20121213
  2. DEPO-TESTOSTERONE [Suspect]
     Active Substance: TESTOSTERONE CYPIONATE
     Dosage: UNK, MONTHLY (ONCE A MONTH)
     Dates: start: 20130212, end: 20130530
  3. DEPO-TESTOSTERONE [Suspect]
     Active Substance: TESTOSTERONE CYPIONATE
     Indication: HORMONE REPLACEMENT THERAPY
     Dosage: UNK, MONTHLY (ONCE A MONTH)
     Dates: start: 20111005, end: 20120920
  4. DEPO-TESTOSTERONE [Suspect]
     Active Substance: TESTOSTERONE CYPIONATE
     Dosage: UNK, MONTHLY (ONCE A MONTH)
     Dates: start: 20140318, end: 20140417

REACTIONS (2)
  - Myocardial infarction [Unknown]
  - Cardiac disorder [Not Recovered/Not Resolved]

NARRATIVE: CASE EVENT DATE: 20120613
